FAERS Safety Report 4776574-8 (Version None)
Quarter: 2005Q3

REPORT INFORMATION
  Report Type: 
  Country: None (occurrence: None)
  Receive Date: 20050923
  Receipt Date: 20050912
  Transmission Date: 20060218
  Serious: Yes (Hospitalization)
  Sender: FDA-Public Use
  Company Number: PHNR2005AU01410

PATIENT
  Age: 29 Year
  Sex: Female

DRUGS (7)
  1. VOLTAREN [Suspect]
     Dosage: 50 MG, PRN
     Route: 048
     Dates: start: 20050310, end: 20050312
  2. ACETAMINOPHEN [Concomitant]
     Route: 048
     Dates: start: 20050308
  3. ACETAMINOPHEN W/ CODEINE [Concomitant]
     Route: 048
     Dates: start: 20050308
  4. ACETAMINOPHEN W/ CODEINE [Concomitant]
     Dates: start: 20050308
  5. MAXOLON [Concomitant]
     Dosage: 10 MG, UNK
     Dates: start: 20050308
  6. PETHIDINE HYDROCHLORIDE [Concomitant]
     Dosage: 50 MG, UNK
     Route: 030
     Dates: start: 20050308
  7. HEPARIN SODIUM [Concomitant]
     Route: 058
     Dates: start: 20050310

REACTIONS (2)
  - SWELLING FACE [None]
  - SWOLLEN TONGUE [None]
